FAERS Safety Report 9591278 (Version 3)
Quarter: 2016Q2

REPORT INFORMATION
  Report Type: Report from Study
  Country: US (occurrence: US)
  Receive Date: 20131003
  Receipt Date: 20160429
  Transmission Date: 20160815
  Serious: No
  Sender: FDA-Public Use
  Company Number: US-AMGEN-USASP2012080723

PATIENT
  Age: 29 Year
  Sex: Female

DRUGS (3)
  1. ENBREL [Suspect]
     Active Substance: ETANERCEPT
     Indication: PSORIATIC ARTHROPATHY
     Dosage: 50 MG, QWK
     Route: 065
     Dates: start: 20041001
  2. ENBREL [Suspect]
     Active Substance: ETANERCEPT
     Dosage: UNK UNK, UNK
     Route: 065
  3. ENBREL [Suspect]
     Active Substance: ETANERCEPT
     Dosage: UNK
     Route: 065

REACTIONS (28)
  - Eye irritation [Not Recovered/Not Resolved]
  - Eye disorder [Not Recovered/Not Resolved]
  - Blood pressure fluctuation [Not Recovered/Not Resolved]
  - Injection site swelling [Not Recovered/Not Resolved]
  - Injection site pruritus [Not Recovered/Not Resolved]
  - Vision blurred [Unknown]
  - Tension [Not Recovered/Not Resolved]
  - Conjunctivitis [Recovered/Resolved]
  - Infection [Unknown]
  - Stress [Unknown]
  - Dyspnoea [Unknown]
  - Injection site haemorrhage [Unknown]
  - Headache [Unknown]
  - Eye pain [Not Recovered/Not Resolved]
  - Hypersensitivity [Unknown]
  - Cough [Unknown]
  - Vulvovaginal mycotic infection [Unknown]
  - Visual acuity reduced [Not Recovered/Not Resolved]
  - Optic nerve disorder [Not Recovered/Not Resolved]
  - Oropharyngeal pain [Unknown]
  - Injection site bruising [Not Recovered/Not Resolved]
  - Injection site reaction [Not Recovered/Not Resolved]
  - Injection site pain [Unknown]
  - Nasopharyngitis [Unknown]
  - Hypoaesthesia [Unknown]
  - Fear [Unknown]
  - Blepharitis [Recovered/Resolved]
  - Ear pain [Unknown]

NARRATIVE: CASE EVENT DATE: 20041001
